FAERS Safety Report 13853733 (Version 2)
Quarter: 2017Q4

REPORT INFORMATION
  Report Type: Report from Study
  Country: US (occurrence: US)
  Receive Date: 20170810
  Receipt Date: 20171212
  Transmission Date: 20180320
  Serious: No
  Sender: FDA-Public Use
  Company Number: US-JNJFOC-20170805387

PATIENT
  Age: 61 Year
  Sex: Female

DRUGS (1)
  1. REMICADE [Suspect]
     Active Substance: INFLIXIMAB
     Indication: PSORIASIS
     Route: 042
     Dates: start: 20130411, end: 20140211

REACTIONS (3)
  - Urinary tract infection [Unknown]
  - Squamous cell carcinoma [Unknown]
  - Heat stroke [Unknown]

NARRATIVE: CASE EVENT DATE: 20170716
